FAERS Safety Report 5985301-8 (Version None)
Quarter: 2008Q4

REPORT INFORMATION
  Report Type: 
  Country: None (occurrence: None)
  Receive Date: 20081203
  Receipt Date: 20080621
  Transmission Date: 20090506
  Serious: Yes (Hospitalization, Other)
  Sender: FDA-Public Use
  Company Number: 2008PL000212

PATIENT
  Age: 55 Year
  Sex: Male

DRUGS (3)
  1. AZATHIOPRINE [Suspect]
     Indication: IMMUNOSUPPRESSANT DRUG THERAPY
     Dosage: ;UNK;
  2. CYKLOSPORINE [Concomitant]
  3. ENCORTON [Concomitant]

REACTIONS (9)
  - BASAL CELL CARCINOMA [None]
  - BONE MARROW FAILURE [None]
  - EPSTEIN-BARR VIRUS ASSOCIATED LYMPHOPROLIFERATIVE DISORDER [None]
  - HEPATITIS B [None]
  - HEPATITIS C [None]
  - HEPATITIS C POSITIVE [None]
  - LIVER INJURY [None]
  - PANCYTOPENIA [None]
  - PSEUDOLYMPHOMA [None]
